FAERS Safety Report 19221800 (Version 1)
Quarter: 2021Q2

REPORT INFORMATION
  Report Type: Spontaneous
  Country: EG (occurrence: EG)
  Receive Date: 20210506
  Receipt Date: 20210506
  Transmission Date: 20210717
  Serious: Yes (Other)
  Sender: FDA-Public Use
  Company Number: EG-HIKMA PHARMACEUTICALS USA INC.-EG-H14001-21-02105

PATIENT
  Age: 54 Year
  Sex: Female
  Weight: 63 kg

DRUGS (10)
  1. DISFLATYL [Concomitant]
     Active Substance: DIMETHICONE
     Indication: IRRITABLE BOWEL SYNDROME
     Dosage: UNKNOWN
     Route: 048
  2. CARBOTINOL [Suspect]
     Active Substance: CARBOPLATIN
     Indication: OVARIAN CANCER
     Route: 041
     Dates: start: 20200819
  3. UVAMIN RETARD [Concomitant]
     Active Substance: NITROFURANTOIN
     Indication: URINARY TRACT INFECTION
     Dosage: UNKNOWN
     Route: 065
  4. CRANBERRY. [Concomitant]
     Active Substance: CRANBERRY
     Indication: URINARY TRACT INFECTION
     Dosage: UNKNOWN
     Route: 065
  5. GEMCITABINE. [Suspect]
     Active Substance: GEMCITABINE
     Indication: OVARIAN CANCER
     Dosage: UNKNOWN
     Route: 041
     Dates: start: 20200819
  6. CONTROLOC [Concomitant]
     Active Substance: PANTOPRAZOLE SODIUM
     Indication: IRRITABLE BOWEL SYNDROME
     Dosage: UNKNOWN
     Route: 048
  7. VISCERALGINE [Concomitant]
     Indication: IRRITABLE BOWEL SYNDROME
     Dosage: UNKNOWN
     Route: 048
  8. COLOVERIN D [Concomitant]
     Indication: IRRITABLE BOWEL SYNDROME
     Dosage: UNKNOWN
     Route: 048
  9. AVASTIN [Suspect]
     Active Substance: BEVACIZUMAB
     Indication: OVARIAN CANCER
     Dosage: UNKNOWN
     Route: 065
     Dates: start: 20200819
  10. GAST?REG [Concomitant]
     Indication: IRRITABLE BOWEL SYNDROME
     Dosage: UNKNOWN
     Route: 048

REACTIONS (7)
  - Chills [Recovered/Resolved]
  - Pruritus [Recovered/Resolved]
  - Dyspnoea [Recovered/Resolved]
  - Vomiting [Recovered/Resolved]
  - Erythema [Recovered/Resolved]
  - Pain [Recovered/Resolved]
  - Blood pressure increased [Recovered/Resolved]

NARRATIVE: CASE EVENT DATE: 20210330
